FAERS Safety Report 14830137 (Version 2)
Quarter: 2018Q2

REPORT INFORMATION
  Report Type: Report from Study
  Country: US (occurrence: US)
  Receive Date: 20180430
  Receipt Date: 20180619
  Transmission Date: 20180711
  Serious: Yes (Death, Hospitalization)
  Sender: FDA-Public Use
  Company Number: US-ACTELION-A-US2018-171383

PATIENT
  Age: 48 Year
  Sex: Male

DRUGS (1)
  1. UPTRAVI [Suspect]
     Active Substance: SELEXIPAG
     Indication: PULMONARY ARTERIAL HYPERTENSION
     Dosage: 200 MCG, BID
     Route: 048
     Dates: start: 20180314

REACTIONS (7)
  - Renal failure [Fatal]
  - Headache [Unknown]
  - Fluid retention [Unknown]
  - Pain [Unknown]
  - Catheter site thrombosis [Unknown]
  - Cardiac failure [Fatal]
  - Disease progression [Fatal]

NARRATIVE: CASE EVENT DATE: 20180411
